FAERS Safety Report 4285249-3 (Version None)
Quarter: 2004Q1

REPORT INFORMATION
  Report Type: 
  Country: None (occurrence: None)
  Receive Date: 20040203
  Receipt Date: 20040203
  Transmission Date: 20041129
  Serious: Yes (Hospitalization)
  Sender: FDA-Public Use
  Company Number: None

PATIENT
  Sex: Female
  Weight: 62 kg

DRUGS (11)
  1. LEPIRUDIN [Suspect]
     Indication: HEPARIN-INDUCED THROMBOCYTOPENIA
     Dosage: 0.045 KG/HR IV
     Route: 042
     Dates: start: 20030812, end: 20030818
  2. NYSTATIN [Concomitant]
  3. PREDNISONE [Concomitant]
  4. CEFEPIME [Concomitant]
  5. VANCOMYCIN [Concomitant]
  6. LANZOPRAZOLE [Concomitant]
  7. POTASSIUM CHLORIDE [Concomitant]
  8. ENALAPRIL [Concomitant]
  9. METOPROLOL [Concomitant]
  10. FUROSEMIDE [Concomitant]
  11. FERROUS SULFATE TAB [Concomitant]

REACTIONS (7)
  - CATHETER RELATED INFECTION [None]
  - HAEMATOMA [None]
  - HAEMOGLOBIN DECREASED [None]
  - HYPOTENSION [None]
  - LETHARGY [None]
  - POST PROCEDURAL HAEMORRHAGE [None]
  - SEPSIS [None]
